FAERS Safety Report 5192952-X (Version None)
Quarter: 2006Q4

REPORT INFORMATION
  Report Type: 
  Country: None (occurrence: None)
  Receive Date: 20061228
  Receipt Date: 20060317
  Transmission Date: 20070319
  Serious: No
  Sender: FDA-Public Use
  Company Number: US-GLAXOSMITHKLINE-A0598067A

PATIENT
  Age: 68 Year
  Sex: Female

DRUGS (2)
  1. FLONASE [Suspect]
     Dosage: 1PUFF PER DAY
     Route: 045
     Dates: start: 20060118, end: 20060317
  2. CLARITIN-D [Concomitant]

REACTIONS (2)
  - BLOOD BLISTER [None]
  - PRURITUS [None]
